FAERS Safety Report 20885078 (Version 3)
Quarter: 2022Q4

REPORT INFORMATION
  Report Type: Spontaneous
  Country: JP (occurrence: JP)
  Receive Date: 20220527
  Receipt Date: 20221104
  Transmission Date: 20230112
  Serious: Yes (Other)
  Sender: FDA-Public Use
  Company Number: JP-PFIZER INC-202200721890

PATIENT
  Age: 38 Year
  Sex: Male

DRUGS (6)
  1. AXITINIB [Suspect]
     Active Substance: AXITINIB
     Indication: Renal cell carcinoma stage IV
     Dosage: UNK
  2. HYDROCORTISONE [Suspect]
     Active Substance: HYDROCORTISONE
     Indication: Hypothyroidism
     Dosage: 10 MG/DAY
  3. HYDROCORTISONE [Suspect]
     Active Substance: HYDROCORTISONE
     Indication: Adrenal insufficiency
  4. PREDNISOLONE [Suspect]
     Active Substance: PREDNISOLONE
     Indication: Radiation pneumonitis
     Dosage: 20 MG PER DAY
  5. LEVOTHYROXINE [Concomitant]
     Active Substance: LEVOTHYROXINE
     Indication: Hypothyroidism
     Dosage: 75 UG, DAILY (75 UG/DAY)
  6. LEVOTHYROXINE [Concomitant]
     Active Substance: LEVOTHYROXINE
     Indication: Adrenal insufficiency

REACTIONS (3)
  - Necrotising bronchiolitis [Recovering/Resolving]
  - Bronchitis bacterial [Recovering/Resolving]
  - Staphylococcal infection [Recovering/Resolving]
